FAERS Safety Report 24264187 (Version 2)
Quarter: 2024Q3

REPORT INFORMATION
  Report Type: Spontaneous
  Country: US (occurrence: US)
  Receive Date: 20240829
  Receipt Date: 20240903
  Transmission Date: 20241017
  Serious: No
  Sender: PFIZER
  Company Number: US-PFIZER INC-PV202400111845

PATIENT
  Age: 16 Year
  Sex: Male
  Weight: 49.8 kg

DRUGS (4)
  1. GENOTROPIN [Suspect]
     Active Substance: SOMATROPIN
     Indication: Growth hormone deficiency
     Dosage: 1.2 MG DAILY
     Dates: start: 20210928
  2. GENOTROPIN [Suspect]
     Active Substance: SOMATROPIN
     Dosage: 2 MG, DAILY
     Route: 058
     Dates: start: 20230331
  3. GENOTROPIN [Suspect]
     Active Substance: SOMATROPIN
     Indication: Growth hormone deficiency
     Dosage: 2 MG, DAILY
     Route: 058
  4. GENOTROPIN [Suspect]
     Active Substance: SOMATROPIN
     Indication: Growth retardation
     Dosage: 2.2 MG, DAILY
     Route: 058
     Dates: start: 20240329

REACTIONS (3)
  - Insulin-like growth factor decreased [Unknown]
  - Hydrocele [Recovered/Resolved]
  - Cyst [Unknown]
